FAERS Safety Report 14623586 (Version 3)
Quarter: 2018Q3

REPORT INFORMATION
  Report Type: Spontaneous
  Country: ES (occurrence: ES)
  Receive Date: 20180312
  Receipt Date: 20180716
  Transmission Date: 20181010
  Serious: Yes (Hospitalization, Other)
  Sender: FDA-Public Use
  Company Number: ES-SUN PHARMACEUTICAL INDUSTRIES LTD-2018R1-165517

PATIENT
  Age: 80 Year
  Sex: Female

DRUGS (9)
  1. BELOKEN 100 MG COMPRIMIDOS, 40 COMPRIMIDOS [Concomitant]
     Indication: PRODUCT USED FOR UNKNOWN INDICATION
     Dosage: 100 MG, DAILY
     Route: 048
  2. LEVEMIR 100 U/ML, SOLUCION INYECTABLE EN UNA PLUMA PRECARGADA [Concomitant]
     Indication: PRODUCT USED FOR UNKNOWN INDICATION
     Dosage: 20 IU, DAILY
     Route: 058
  3. CLEXANE 40 MG (4.000 UI) SOLUCION INYECTABLE EN AMPOLLA , 10 AMPOLL [Interacting]
     Active Substance: ENOXAPARIN SODIUM
     Indication: PRODUCT USED FOR UNKNOWN INDICATION
     Dosage: 40 MG, DAILY
     Route: 058
     Dates: start: 20160422, end: 20160425
  4. OSVAREN 435 MG / 235 MG COMPRIMIDOS RECUBIERTOS CON PELICULA [Concomitant]
     Indication: PRODUCT USED FOR UNKNOWN INDICATION
     Dosage: 2 DF, DAILY
     Route: 048
  5. INEGY 10 MG/20 MG COMPRIMIDOS , 100 COMPRIMIDOS [Concomitant]
     Indication: PRODUCT USED FOR UNKNOWN INDICATION
     Dosage: 1 DF, DAILY
     Route: 048
  6. ANAGASTRA 40 MG COMPRIMIDOS GASTRORRESISTENTES , 14 COMPRIMIDOS [Concomitant]
     Indication: PRODUCT USED FOR UNKNOWN INDICATION
     Dosage: 40 MG, DAILY
     Route: 048
  7. ADIRO 100 MG COMPRIMIDOS GASTRORRESISTENTES EFG , 30 COMPRIMIDOS [Interacting]
     Active Substance: ASPIRIN
     Indication: ISCHAEMIC CARDIOMYOPATHY
     Dosage: 100 MG, DAILY
     Route: 048
     Dates: start: 2010
  8. TRYPTIZOL 10 MG COMPRIMIDOS RECUBIERTOS CON PELICULA, 24 COMPRIMIDOS [Concomitant]
     Indication: PRODUCT USED FOR UNKNOWN INDICATION
     Dosage: 10 MG, DAILY
     Route: 048
  9. CLOPIDOGREL [Suspect]
     Active Substance: CLOPIDOGREL BISULFATE
     Indication: ISCHAEMIC CARDIOMYOPATHY
     Dosage: 75 MG, DAILY
     Route: 048
     Dates: start: 2010, end: 20160425

REACTIONS (3)
  - Syncope [Recovered/Resolved]
  - Lower gastrointestinal haemorrhage [Recovered/Resolved]
  - Hypotension [Recovered/Resolved]

NARRATIVE: CASE EVENT DATE: 20160425
